FAERS Safety Report 16941215 (Version 2)
Quarter: 2020Q1

REPORT INFORMATION
  Report Type: Spontaneous
  Country: US (occurrence: US)
  Receive Date: 20191021
  Receipt Date: 20200207
  Transmission Date: 20200409
  Serious: Yes (Hospitalization)
  Sender: FDA-Public Use
  Company Number: US-SA-2019SA290718

PATIENT
  Age: 47 Year
  Sex: Male
  Weight: 162.4 kg

DRUGS (22)
  1. PLAVIX [Suspect]
     Active Substance: CLOPIDOGREL BISULFATE
     Dosage: 300 MG
     Route: 065
     Dates: start: 20190718
  2. PLAVIX [Suspect]
     Active Substance: CLOPIDOGREL BISULFATE
     Dosage: 75 MG
     Route: 048
     Dates: start: 20190720, end: 20190811
  3. ACETYLSALICYLIC ACID [Suspect]
     Active Substance: ASPIRIN
     Dosage: 100 MG
     Route: 048
     Dates: start: 20190920, end: 20190920
  4. PLAVIX [Suspect]
     Active Substance: CLOPIDOGREL BISULFATE
     Dosage: 75 MG
     Route: 048
     Dates: start: 20190812, end: 20190812
  5. ACETYLSALICYLIC ACID [Suspect]
     Active Substance: ASPIRIN
     Dosage: 100 MG
     Route: 048
     Dates: start: 20190813, end: 20190919
  6. ACETYLSALICYLIC ACID [Suspect]
     Active Substance: ASPIRIN
     Dosage: 100 MG
     Route: 048
     Dates: start: 20190921, end: 20191010
  7. ACETYLSALICYLIC ACID [Suspect]
     Active Substance: ASPIRIN
     Dosage: 100 MG
     Route: 048
     Dates: start: 20191011, end: 20191011
  8. ANCEF [ATAZANAVIR SULFATE] [Concomitant]
     Active Substance: ATAZANAVIR SULFATE
     Dosage: 2 G
     Dates: start: 20191010, end: 20191010
  9. PLAVIX [Suspect]
     Active Substance: CLOPIDOGREL BISULFATE
     Dosage: 75 MG
     Route: 048
     Dates: start: 20190719, end: 20190719
  10. ACETYLSALICYLIC ACID [Suspect]
     Active Substance: ASPIRIN
     Dosage: 100 MG
     Route: 048
     Dates: start: 20190719, end: 20190719
  11. ACETYLSALICYLIC ACID [Suspect]
     Active Substance: ASPIRIN
     Dosage: 100 MG
     Route: 048
     Dates: start: 20190812, end: 20190812
  12. FORSKOLIN [Concomitant]
     Active Substance: COLFORSIN
     Indication: PROPHYLAXIS
     Dosage: 800 MG
  13. ATORVASTATIN [Concomitant]
     Active Substance: ATORVASTATIN
     Indication: PROPHYLAXIS
     Dosage: 80 MG
     Dates: start: 20190718
  14. VERSED [Concomitant]
     Active Substance: MIDAZOLAM HYDROCHLORIDE
     Dosage: 4 MG
     Dates: start: 20191010, end: 20191010
  15. ACETAMINOPHEN. [Concomitant]
     Active Substance: ACETAMINOPHEN
     Dosage: 650 MG
     Dates: start: 20190717, end: 20190717
  16. ACETAMINOPHEN. [Concomitant]
     Active Substance: ACETAMINOPHEN
     Dosage: 1300 MG
     Dates: start: 20190718, end: 20190718
  17. ACETAMINOPHEN. [Concomitant]
     Active Substance: ACETAMINOPHEN
     Dosage: 650 MG
     Dates: start: 20190719, end: 20190719
  18. VORTIOXETINE. [Concomitant]
     Active Substance: VORTIOXETINE
     Dosage: 20 MG
  19. FENTANYL. [Concomitant]
     Active Substance: FENTANYL
     Dosage: 100 UG
     Dates: start: 20191010, end: 20191010
  20. PROPOFOL. [Concomitant]
     Active Substance: PROPOFOL
     Dosage: 310 MG
     Dates: start: 20190719, end: 20190719
  21. ACETYLSALICYLIC ACID [Suspect]
     Active Substance: ASPIRIN
     Dosage: 100 MG
     Route: 048
     Dates: start: 20190720, end: 20190811
  22. LIDOCAINE. [Concomitant]
     Active Substance: LIDOCAINE
     Dosage: 10 UNK
     Dates: start: 20191010, end: 20191010

REACTIONS (1)
  - Atrial septal defect [Recovered/Resolved]

NARRATIVE: CASE EVENT DATE: 20190719
